FAERS Safety Report 8890443 (Version 4)
Quarter: 2014Q1

REPORT INFORMATION
  Report Type: Spontaneous
  Country: US (occurrence: US)
  Receive Date: 20121106
  Receipt Date: 20140205
  Transmission Date: 20141002
  Serious: Yes (Hospitalization, Other)
  Sender: FDA-Public Use
  Company Number: US-009507513-1210USA012437

PATIENT
  Sex: Female
  Weight: 63.49 kg

DRUGS (10)
  1. FOSAMAX [Suspect]
     Indication: OSTEOPOROSIS
     Dosage: 10 MG, QD
     Route: 048
     Dates: start: 199907, end: 200110
  2. FOSAMAX [Suspect]
     Dosage: 70 MG, QW
     Route: 048
     Dates: start: 200110, end: 200802
  3. ALENDRONATE SODIUM [Suspect]
     Indication: OSTEOPOROSIS
     Dosage: 70 MG, QW
     Route: 048
     Dates: start: 200803, end: 200910
  4. VITAMINS (UNSPECIFIED) [Concomitant]
  5. CALCIUM (UNSPECIFIED) (+) VITAMIN D (UNSPECIFIED) [Concomitant]
     Dosage: 600MG-400MG, QD
     Dates: start: 1980
  6. LYSINE [Concomitant]
     Dosage: 1000 MG, QD
     Dates: start: 1980
  7. ASCORBIC ACID [Concomitant]
     Dosage: 1000 MG, QD
  8. FERROUS SULFATE [Concomitant]
     Dosage: 65 MG, QD
     Dates: start: 2000
  9. OMEGA-3 MARINE TRIGLYCERIDES [Concomitant]
     Dosage: 1200MG,QD
     Dates: start: 2000
  10. PREMPRO [Concomitant]
     Dosage: UNK
     Dates: start: 1996, end: 2002

REACTIONS (16)
  - Femur fracture [Recovered/Resolved]
  - Intramedullary rod insertion [Unknown]
  - Femur fracture [Unknown]
  - Oral surgery [Unknown]
  - Tooth extraction [Unknown]
  - Hypertension [Unknown]
  - Rheumatoid arthritis [Unknown]
  - Depression [Unknown]
  - Arthritis [Unknown]
  - Fibromyalgia [Unknown]
  - Ecchymosis [Unknown]
  - Fall [Unknown]
  - Exostosis [Unknown]
  - Back pain [Not Recovered/Not Resolved]
  - Gastrooesophageal reflux disease [Unknown]
  - Arthralgia [Unknown]
